FAERS Safety Report 20330555 (Version 2)
Quarter: 2022Q3

REPORT INFORMATION
  Report Type: Spontaneous
  Country: US (occurrence: US)
  Receive Date: 20220113
  Receipt Date: 20220913
  Transmission Date: 20221026
  Serious: Yes (Other)
  Sender: FDA-Public Use
  Company Number: US-SA-SAC20220106000149

PATIENT
  Age: 55 Year
  Sex: Male

DRUGS (2)
  1. ZANTAC [Suspect]
     Active Substance: RANITIDINE HYDROCHLORIDE
     Indication: Hiatus hernia
     Dosage: UNK, QD
     Route: 065
     Dates: start: 199001, end: 201912
  2. RANITIDINE [Suspect]
     Active Substance: RANITIDINE
     Indication: Hiatus hernia
     Dosage: UNK
     Route: 065

REACTIONS (6)
  - Gastrointestinal carcinoma [Unknown]
  - Gastric cancer [Unknown]
  - Appendix cancer [Unknown]
  - Small intestine carcinoma [Unknown]
  - Injury [Unknown]
  - Surgery [Unknown]

NARRATIVE: CASE EVENT DATE: 20170901
